FAERS Safety Report 9319596 (Version 1)
Quarter: 2013Q2

REPORT INFORMATION
  Report Type: Report from Study
  Country: UA (occurrence: UA)
  Receive Date: 20130530
  Receipt Date: 20130530
  Transmission Date: 20140414
  Serious: Yes (Hospitalization)
  Sender: FDA-Public Use
  Company Number: UA-TEVA-339478ISR

PATIENT
  Age: 58 Year
  Sex: Male
  Weight: 101 kg

DRUGS (17)
  1. TL011 [Suspect]
     Indication: DIFFUSE LARGE B-CELL LYMPHOMA
     Dosage: DOUBLE BLIND: TL011 VS. MABTHERA
     Route: 042
     Dates: start: 20120215
  2. MABTHERA [Suspect]
     Indication: NON-HODGKIN^S LYMPHOMA
     Dosage: DOUBLE BLIND: TL011 VS. MABTHERA
     Route: 042
     Dates: start: 20110323, end: 20110707
  3. DOXORUBICIN [Suspect]
     Dosage: 100 MILLIGRAM DAILY;
     Route: 042
     Dates: start: 20120425, end: 20120425
  4. VINCRISTINE [Suspect]
     Indication: CHEMOTHERAPY
     Dosage: 2 MILLIGRAM DAILY;
     Route: 042
     Dates: start: 20120425
  5. CYCLOPHOSPHAMIDE [Suspect]
     Indication: CHEMOTHERAPY
     Dosage: 1500 MILLIGRAM DAILY;
     Route: 042
     Dates: start: 20120425, end: 20120425
  6. PREDNISOLONE [Suspect]
     Indication: CHEMOTHERAPY
     Dosage: 80 MILLIGRAM DAILY;
     Route: 042
     Dates: start: 20120425, end: 20120425
  7. PREDNISOLONE [Suspect]
     Dosage: 80 MILLIGRAM DAILY;
     Route: 048
     Dates: start: 20120426, end: 20120429
  8. OMEPRAZOLUM [Concomitant]
     Indication: PROPHYLAXIS AGAINST GASTROINTESTINAL ULCER
     Dosage: 40 MILLIGRAM DAILY;
     Route: 048
     Dates: start: 20120425, end: 20120429
  9. OMEPRAZOLUM [Concomitant]
     Dosage: 40 MILLIGRAM DAILY;
     Route: 048
     Dates: start: 20110707, end: 20110711
  10. DIPHENHYDRAMINE [Concomitant]
     Indication: PREMEDICATION
     Dosage: 50 MILLIGRAM DAILY;
     Route: 042
     Dates: start: 20120425, end: 20120425
  11. DIPHENHYDRAMINE [Concomitant]
     Dosage: 50 MILLIGRAM DAILY;
     Route: 042
     Dates: start: 20110707, end: 20110707
  12. ACETAMINOPHEN [Concomitant]
     Indication: PREMEDICATION
     Dosage: 1000 MILLIGRAM DAILY;
     Route: 048
     Dates: start: 20120425, end: 20120425
  13. ACETAMINOPHEN [Concomitant]
     Route: 048
     Dates: start: 20110707, end: 20110707
  14. BISOPROLOL [Concomitant]
     Indication: HYPERTENSIVE HEART DISEASE
     Dosage: 5 MILLIGRAM DAILY;
     Route: 048
     Dates: start: 20120208, end: 20120528
  15. SYDNOPHARM [Concomitant]
     Indication: ANGINA PECTORIS
     Dosage: 2 TABLET DAILY;
     Route: 048
     Dates: start: 20120208
  16. TRIMETAZIDINE [Concomitant]
     Indication: ANGINA PECTORIS
     Dosage: 3 TABLET DAILY;
     Route: 048
     Dates: start: 20120208
  17. ENAP H [Concomitant]
     Indication: HYPERTENSIVE HEART DISEASE
     Dosage: 10 MILLIGRAM DAILY;
     Route: 048
     Dates: start: 20120208, end: 20120528

REACTIONS (1)
  - Alanine aminotransferase increased [Recovered/Resolved]
